FAERS Safety Report 5139407-6 (Version None)
Quarter: 2006Q4

REPORT INFORMATION
  Report Type: 
  Country: None (occurrence: None)
  Receive Date: 20061030
  Receipt Date: 20051201
  Transmission Date: 20070319
  Serious: Yes (Life-Threatening, Hospitalization, Other)
  Sender: FDA-Public Use
  Company Number: US-GLAXOSMITHKLINE-A0584524A

PATIENT
  Age: 9 Year
  Sex: Male

DRUGS (4)
  1. SEREVENT [Suspect]
     Route: 055
  2. SINGULAIR [Concomitant]
     Indication: ASTHMA
     Route: 048
  3. FLOVENT [Concomitant]
     Dosage: 2PUFF IN THE MORNING
     Route: 055
  4. MAXAIR [Concomitant]
     Route: 055

REACTIONS (8)
  - AGITATION [None]
  - DRUG ADMINISTRATION ERROR [None]
  - FEELING ABNORMAL [None]
  - HEADACHE [None]
  - HYPOKALAEMIA [None]
  - OVERDOSE [None]
  - SUPRAVENTRICULAR TACHYCARDIA [None]
  - TACHYCARDIA [None]
